FAERS Safety Report 9183191 (Version 1)
Quarter: 2012Q4

REPORT INFORMATION
  Report Type: Report from Study
  Country: HK (occurrence: HK)
  Receive Date: 20121031
  Receipt Date: 20121031
  Transmission Date: 20130627
  Serious: Yes (Other)
  Sender: FDA-Public Use
  Company Number: HK-RB-046136-12

PATIENT
  Age: 24 Month
  Sex: Male

DRUGS (1)
  1. DETTOL (BENZALKONIUM CHLORIDE\LIDOCAINE HYDROCHLORIDE) [Suspect]
     Indication: PRODUCT USED FOR UNKNOWN INDICATION
     Dosage: Gave two mouthfuls of the product
     Route: 048

REACTIONS (3)
  - Child abuse [Unknown]
  - Accidental exposure to product by child [Unknown]
  - Incorrect route of drug administration [Unknown]
